FAERS Safety Report 4281783-0 (Version None)
Quarter: 2004Q1

REPORT INFORMATION
  Report Type: 
  Country: None (occurrence: None)
  Receive Date: 20040129
  Receipt Date: 20040129
  Transmission Date: 20041129
  Serious: Yes (Hospitalization)
  Sender: FDA-Public Use
  Company Number: None

PATIENT
  Age: 67 Year
  Sex: Male
  Weight: 83.9154 kg

DRUGS (10)
  1. CYTOXAN [Suspect]
     Indication: CHRONIC LYMPHOCYTIC LEUKAEMIA
     Dosage: 600 MG/M2 IV
     Route: 042
     Dates: start: 20031215, end: 20031219
  2. FLUDARA [Suspect]
     Dosage: 20 MG/M2 IV
     Route: 042
     Dates: start: 20031215, end: 20031219
  3. NEUPOGEN [Concomitant]
  4. PROCRIT [Concomitant]
  5. ALLOPURINOL [Concomitant]
  6. PREVACID [Concomitant]
  7. BACTRIM DS [Concomitant]
  8. RHINOCORT [Concomitant]
  9. CELEBREX [Concomitant]
  10. ACYCLOVIR [Concomitant]

REACTIONS (8)
  - ANAEMIA [None]
  - CELLULITIS [None]
  - DYSPNOEA [None]
  - GOUT [None]
  - OEDEMA PERIPHERAL [None]
  - PAIN IN EXTREMITY [None]
  - PYREXIA [None]
  - RASH [None]
